FAERS Safety Report 9705880 (Version 1)
Quarter: 2013Q4

REPORT INFORMATION
  Report Type: Report from Study
  Country: JP (occurrence: JP)
  Receive Date: 20131122
  Receipt Date: 20131122
  Transmission Date: 20140711
  Serious: Yes (Death)
  Sender: FDA-Public Use
  Company Number: JP-TAKEDA-2013TJP003022

PATIENT
  Age: 85 Year
  Sex: Female
  Weight: 41 kg

DRUGS (2)
  1. LANSOPRAZOLE [Suspect]
     Indication: PROPHYLAXIS AGAINST GASTROINTESTINAL ULCER
     Dosage: 15 MG, QD
     Route: 048
     Dates: start: 20120824, end: 20130305
  2. BAYASPIRIN [Concomitant]
     Indication: THROMBOSIS PROPHYLAXIS
     Dosage: 100 MG, 1DAYS
     Route: 048
     Dates: start: 20120821, end: 20130305

REACTIONS (1)
  - Aortic aneurysm rupture [Fatal]
